FAERS Safety Report 7270326-5 (Version None)
Quarter: 2011Q1

REPORT INFORMATION
  Report Type: 
  Country: None (occurrence: None)
  Receive Date: 20110202
  Receipt Date: 20101207
  Transmission Date: 20110831
  Serious: Yes (Other)
  Sender: FDA-Public Use
  Company Number: US-BAYER-201038195NA

PATIENT
  Sex: Female

DRUGS (1)
  1. MIRENA [Suspect]
     Indication: MENORRHAGIA
     Route: 015
     Dates: start: 20081101

REACTIONS (5)
  - VULVOVAGINAL PRURITUS [None]
  - DYSURIA [None]
  - DEVICE DISLOCATION [None]
  - GENITAL INFECTION FEMALE [None]
  - MENORRHAGIA [None]
